FAERS Safety Report 12059620 (Version 2)
Quarter: 2016Q1

REPORT INFORMATION
  Report Type: Report from Study
  Country: IT (occurrence: IT)
  Receive Date: 20160210
  Receipt Date: 20160218
  Transmission Date: 20160526
  Serious: Yes (Hospitalization)
  Sender: FDA-Public Use
  Company Number: IT-TEVA-632986ACC

PATIENT
  Age: 63 Year
  Sex: Female

DRUGS (6)
  1. CYTARABIN [Suspect]
     Active Substance: CYTARABINE
     Dosage: 6800 MG CYCLICAL
     Route: 042
     Dates: start: 20151123, end: 20151123
  2. RITUXIMAB [Suspect]
     Active Substance: RITUXIMAB
     Indication: LYMPHOMA
     Dosage: 1400 MG CYCLICAL
     Route: 058
     Dates: start: 20151116
  3. LONQUEX [Suspect]
     Active Substance: LIPEGFILGRASTIM
     Indication: PRODUCT USED FOR UNKNOWN INDICATION
     Dates: start: 20151226, end: 20151226
  4. CISPLATIN. [Suspect]
     Active Substance: CISPLATIN
     Indication: LYMPHOMA
     Dosage: 170 MG CYCLICAL
     Route: 042
     Dates: start: 20151122
  5. PREDNISONE. [Concomitant]
     Active Substance: PREDNISONE
     Indication: LYMPHOMA
     Dosage: 160 MG CYCLICAL
     Dates: start: 20151223, end: 20151226
  6. CYTARABIN [Suspect]
     Active Substance: CYTARABINE
     Indication: LYMPHOMA
     Dosage: 3400 MG CYCLICAL
     Route: 042
     Dates: start: 20151223

REACTIONS (1)
  - Pneumonitis [Recovered/Resolved]

NARRATIVE: CASE EVENT DATE: 20160108
